FAERS Safety Report 10047029 (Version 1)
Quarter: 2014Q1

REPORT INFORMATION
  Report Type: Spontaneous
  Country: US (occurrence: None)
  Receive Date: 20140328
  Receipt Date: 20140328
  Transmission Date: 20141002
  Serious: Yes (Hospitalization)
  Sender: FDA-Public Use
  Company Number: None

PATIENT
  Age: 73 Year
  Sex: Female
  Weight: 62.14 kg

DRUGS (16)
  1. APREMILAST [Suspect]
     Indication: RHEUMATOID ARTHRITIS
     Route: 048
     Dates: start: 20140130, end: 20140325
  2. PLACEBO [Suspect]
     Indication: RHEUMATOID ARTHRITIS
     Route: 048
     Dates: start: 20140130, end: 20140325
  3. COREG [Concomitant]
  4. TORESEMIDE [Concomitant]
  5. FEXOFENADINE [Concomitant]
  6. PLAQUENIL [Concomitant]
  7. PREDNISONE [Concomitant]
  8. SIMVASTATIN [Concomitant]
  9. CELEBREX [Concomitant]
  10. WARFARIN [Concomitant]
  11. ERGOCALCIFEROL [Concomitant]
  12. NEXIUM [Concomitant]
  13. TYLENOL [Concomitant]
  14. METHOTREXATE [Concomitant]
  15. FOLIC ACID [Concomitant]
  16. GABAPENTIN [Concomitant]

REACTIONS (3)
  - Chest discomfort [None]
  - Palpitations [None]
  - Blood pressure increased [None]
